FAERS Safety Report 13517633 (Version 1)
Quarter: 2017Q2

REPORT INFORMATION
  Report Type: Spontaneous
  Country: GB (occurrence: GB)
  Receive Date: 20170505
  Receipt Date: 20170505
  Transmission Date: 20170830
  Serious: Yes (Congenital Anomaly)
  Sender: FDA-Public Use
  Company Number: GB-PFIZER INC-2017193462

PATIENT

DRUGS (7)
  1. ONDANSETRON HYDROCHLORIDE. [Concomitant]
     Active Substance: ONDANSETRON HYDROCHLORIDE
     Dosage: UNK
     Route: 064
  2. SERTRALINE HCL [Suspect]
     Active Substance: SERTRALINE HYDROCHLORIDE
     Indication: DEPRESSION
     Dosage: 100 MG, 1X/DAY
     Route: 064
  3. HUMALOG [Suspect]
     Active Substance: INSULIN LISPRO
     Indication: TYPE 1 DIABETES MELLITUS
     Dosage: 4 UNITS TO 10G CARBOHYDRATE
     Route: 064
     Dates: start: 20061127
  4. PROCHLORPERAZINE MALEATE. [Concomitant]
     Active Substance: PROCHLORPERAZINE MALEATE
     Dosage: UNK
     Route: 064
  5. TRESIBA [Suspect]
     Active Substance: INSULIN DEGLUDEC
     Indication: TYPE 1 DIABETES MELLITUS
     Dosage: 38 IU, UNK
     Route: 064
     Dates: start: 20160201, end: 20170123
  6. GABAPENTIN. [Suspect]
     Active Substance: GABAPENTIN
     Indication: BACK PAIN
     Dosage: 300 MG, 3X/DAY
     Route: 064
     Dates: start: 20160105
  7. NAPROXEN. [Suspect]
     Active Substance: NAPROXEN
     Indication: BACK PAIN
     Dosage: 500 MG, 2X/DAY
     Route: 064

REACTIONS (3)
  - Congenital cardiovascular anomaly [Not Recovered/Not Resolved]
  - Maternal exposure during pregnancy [Unknown]
  - Abdominal transposition [Not Recovered/Not Resolved]

NARRATIVE: CASE EVENT DATE: 20170411
